FAERS Safety Report 5479513-X (Version None)
Quarter: 2007Q4

REPORT INFORMATION
  Report Type: 
  Country: None (occurrence: None)
  Receive Date: 20071008
  Receipt Date: 20070927
  Transmission Date: 20080405
  Serious: Yes (Hospitalization)
  Sender: FDA-Public Use
  Company Number: BE-ROCHE-494356

PATIENT
  Age: 75 Year
  Sex: Female
  Weight: 76 kg

DRUGS (7)
  1. IBANDRONATE SODIUM [Suspect]
     Indication: OSTEOPOROSIS POSTMENOPAUSAL
     Dosage: PERMANENTLY DISCONTINUED.
     Route: 048
     Dates: start: 20061023
  2. MS CONTIN [Concomitant]
     Dates: start: 20000101
  3. DAKAR [Concomitant]
     Dates: start: 20000101
  4. PREDNISONE [Concomitant]
     Dates: start: 20061129
  5. INDAPAMIDE [Concomitant]
     Dosage: DRUG NAME REPORTED AS INDAPAMIDE EG
     Dates: start: 20060401, end: 20070322
  6. D-CURE [Concomitant]
     Dates: start: 20070101
  7. MIXTARD HUMAN 70/30 [Concomitant]
     Dates: start: 20070301

REACTIONS (2)
  - ATRIAL FIBRILLATION [None]
  - MYOCARDIAL ISCHAEMIA [None]
